FAERS Safety Report 8766676 (Version 1)
Quarter: 2012Q4

REPORT INFORMATION
  Report Type: 
  Country: US (occurrence: US)
  Receive Date: 20120904
  Receipt Date: 20120904
  Transmission Date: 20130627
  Serious: No
  Sender: FDA-Public Use
  Company Number: US-JNJFOC-20120813384

PATIENT
  Age: 14 Year
  Weight: 118.3 kg

DRUGS (2)
  1. DURAGESIC [Suspect]
     Indication: DRUG WITHDRAWAL SYNDROME
     Dosage: every 72 hours for duration of 24 days
     Route: 062
  2. FENTANYL CITRATE [Suspect]
     Indication: PRODUCT USED FOR UNKNOWN INDICATION
     Route: 042

REACTIONS (1)
  - Off label use [Unknown]
